FAERS Safety Report 11772056 (Version 1)
Quarter: 2015Q4

REPORT INFORMATION
  Report Type: Report from Study
  Country: US (occurrence: US)
  Receive Date: 20151124
  Receipt Date: 20151124
  Transmission Date: 20160304
  Serious: Yes (Hospitalization)
  Sender: FDA-Public Use
  Company Number: US-JNJFOC-20151116662

PATIENT
  Age: 84 Year
  Sex: Male
  Weight: 75.75 kg

DRUGS (14)
  1. CRESTOR [Concomitant]
     Active Substance: ROSUVASTATIN CALCIUM
     Route: 065
  2. METOPROLOL [Concomitant]
     Active Substance: METOPROLOL
     Route: 065
     Dates: end: 20151108
  3. LOSARTIN [Concomitant]
     Active Substance: LOSARTAN
     Route: 065
  4. ULORIC [Concomitant]
     Active Substance: FEBUXOSTAT
     Route: 065
  5. JANUVIA [Concomitant]
     Active Substance: SITAGLIPTIN PHOSPHATE
     Indication: TYPE 2 DIABETES MELLITUS
     Route: 065
     Dates: end: 20151108
  6. JANUVIA [Concomitant]
     Active Substance: SITAGLIPTIN PHOSPHATE
     Indication: TYPE 2 DIABETES MELLITUS
     Route: 065
  7. LOSARTIN [Concomitant]
     Active Substance: LOSARTAN
     Route: 065
     Dates: end: 20151108
  8. ELIQUIS [Concomitant]
     Active Substance: APIXABAN
     Route: 065
     Dates: end: 20151108
  9. CRESTOR [Concomitant]
     Active Substance: ROSUVASTATIN CALCIUM
     Route: 065
     Dates: end: 20151108
  10. ELIQUIS [Concomitant]
     Active Substance: APIXABAN
     Route: 065
  11. INVOKANA [Suspect]
     Active Substance: CANAGLIFLOZIN
     Indication: TYPE 2 DIABETES MELLITUS
     Route: 048
     Dates: start: 20151109, end: 20151116
  12. INVOKANA [Suspect]
     Active Substance: CANAGLIFLOZIN
     Indication: TYPE 2 DIABETES MELLITUS
     Route: 048
     Dates: start: 201502, end: 20151108
  13. ULORIC [Concomitant]
     Active Substance: FEBUXOSTAT
     Route: 065
     Dates: end: 20151108
  14. METOPROLOL [Concomitant]
     Active Substance: METOPROLOL
     Route: 065

REACTIONS (2)
  - Bladder disorder [Unknown]
  - Tremor [Recovered/Resolved]

NARRATIVE: CASE EVENT DATE: 20151106
